FAERS Safety Report 16239134 (Version 1)
Quarter: 2019Q2

REPORT INFORMATION
  Report Type: Spontaneous
  Country: US (occurrence: US)
  Receive Date: 20190425
  Receipt Date: 20190425
  Transmission Date: 20190711
  Serious: Yes (Other)
  Sender: FDA-Public Use
  Company Number: US-PFIZER INC-2019169832

PATIENT
  Age: 81 Year
  Sex: Female

DRUGS (8)
  1. LOPID [Suspect]
     Active Substance: GEMFIBROZIL
     Dosage: UNK
  2. RUBRACA [Suspect]
     Active Substance: RUCAPARIB CAMSYLATE
     Dosage: 200 MG, 2X/DAY,(200 MG, BID, ORAL)
     Route: 048
     Dates: start: 201808
  3. RUBRACA [Suspect]
     Active Substance: RUCAPARIB CAMSYLATE
     Dosage: 600 MG, 2X/DAY,(600 MG, BID, ORAL)
     Route: 048
     Dates: start: 20190409
  4. RUBRACA [Suspect]
     Active Substance: RUCAPARIB CAMSYLATE
     Dosage: 300 MG, 2X/DAY,(300 MG, BID, ORAL)
     Route: 048
     Dates: start: 201903, end: 20190321
  5. RUBRACA [Suspect]
     Active Substance: RUCAPARIB CAMSYLATE
     Dosage: 400 MG, 2X/DAY,(400 MG, BID, ORAL)
     Route: 048
  6. TAMOXIFEN [TAMOXIFEN CITRATE] [Concomitant]
     Dosage: UNK
  7. RUBRACA [Suspect]
     Active Substance: RUCAPARIB CAMSYLATE
     Indication: FALLOPIAN TUBE CANCER
     Dosage: 600 MG, 2X/DAY,(600 MG, BID, ORAL)
     Route: 048
     Dates: start: 201807
  8. ATORVASTATIN CALCIUM. [Suspect]
     Active Substance: ATORVASTATIN CALCIUM
     Dosage: UNK
     Dates: end: 20190321

REACTIONS (2)
  - Carbohydrate antigen 125 increased [Unknown]
  - Liver function test increased [Recovered/Resolved]

NARRATIVE: CASE EVENT DATE: 201903
